FAERS Safety Report 24435666 (Version 1)
Quarter: 2024Q4

REPORT INFORMATION
  Report Type: Spontaneous
  Country: PH (occurrence: PH)
  Receive Date: 20241015
  Receipt Date: 20241015
  Transmission Date: 20250115
  Serious: Yes (Other)
  Sender: ROCHE
  Company Number: PH-ROCHE-10000097884

PATIENT
  Age: 41 Year
  Sex: Female

DRUGS (2)
  1. TOCILIZUMAB [Suspect]
     Active Substance: TOCILIZUMAB
     Indication: COVID-19
     Route: 042
  2. REMDESIVIR [Concomitant]
     Active Substance: REMDESIVIR

REACTIONS (5)
  - Maternal exposure during pregnancy [Unknown]
  - Premature delivery [Unknown]
  - Chills [Unknown]
  - Dyspnoea [Unknown]
  - Oxygen saturation decreased [Unknown]
